FAERS Safety Report 4400796-9 (Version None)
Quarter: 2004Q3

REPORT INFORMATION
  Report Type: 
  Country: None (occurrence: None)
  Receive Date: 20040907
  Receipt Date: 20030611
  Transmission Date: 20050211
  Serious: No
  Sender: FDA-Public Use
  Company Number: US-BRISTOL-MYERS SQUIBB COMPANY-12298352

PATIENT
  Age: 91 Year
  Sex: Female
  Weight: 48 kg

DRUGS (10)
  1. COUMADIN [Suspect]
     Indication: CEREBROVASCULAR ACCIDENT
     Dosage: DURATION:  5 TO 6 YEARS.  INTERRUPTED ON 23-MAY-03. REDUCED TO 5 MG DAILY AROUND 07-JUL-03.
     Route: 048
     Dates: start: 20001001
  2. DYAZIDE [Suspect]
  3. SYNTHROID [Concomitant]
  4. CARDIZEM [Concomitant]
  5. POTASSIUM CHLORIDE [Concomitant]
  6. LIPITOR [Concomitant]
  7. BETA CAROTENE [Concomitant]
  8. VITAMIN E [Concomitant]
  9. VITAMIN C [Concomitant]
  10. CHONDROITIN + GLUCOSAMINE [Concomitant]

REACTIONS (1)
  - DERMATITIS ALLERGIC [None]
